FAERS Safety Report 23098065 (Version 2)
Quarter: 2023Q4

REPORT INFORMATION
  Report Type: Report from Study
  Country: TW (occurrence: TW)
  Receive Date: 20231023
  Receipt Date: 20231110
  Transmission Date: 20240110
  Serious: Yes (Hospitalization)
  Sender: FDA-Public Use
  Company Number: TW-JNJFOC-20230947897

PATIENT
  Age: 60 Year
  Sex: Female
  Weight: 46.2 kg

DRUGS (19)
  1. TALQUETAMAB [Suspect]
     Active Substance: TALQUETAMAB
     Indication: Plasma cell myeloma
     Route: 058
     Dates: start: 20230510, end: 20230926
  2. DARATUMUMAB [Suspect]
     Active Substance: DARATUMUMAB
     Indication: Plasma cell myeloma
     Route: 058
     Dates: start: 20230509, end: 20230926
  3. POMALIDOMIDE [Suspect]
     Active Substance: POMALIDOMIDE
     Indication: Plasma cell myeloma
     Route: 048
     Dates: start: 20230606, end: 20230916
  4. DEXAMETHASONE [Suspect]
     Active Substance: DEXAMETHASONE
     Indication: Plasma cell myeloma
     Route: 048
     Dates: start: 20230606, end: 20230822
  5. BARACLUDE [Concomitant]
     Active Substance: ENTECAVIR
     Indication: Prophylaxis
     Route: 048
     Dates: start: 20230509
  6. UREA [Concomitant]
     Active Substance: UREA
     Indication: Skin exfoliation
     Route: 061
     Dates: start: 20230815
  7. UREA [Concomitant]
     Active Substance: UREA
     Indication: Dysgeusia
  8. BACLOFEN [Concomitant]
     Active Substance: BACLOFEN
     Indication: Back pain
     Route: 048
     Dates: start: 20230815, end: 20230911
  9. BACLOFEN [Concomitant]
     Active Substance: BACLOFEN
     Route: 048
     Dates: start: 20230914, end: 20230917
  10. METHYLCOBALAMIN [Concomitant]
     Active Substance: METHYLCOBALAMIN
     Indication: Nutritional supplementation
     Route: 048
     Dates: start: 20230815, end: 20230911
  11. METHYLCOBALAMIN [Concomitant]
     Active Substance: METHYLCOBALAMIN
     Route: 048
     Dates: start: 20230914
  12. NICAMETATE [Concomitant]
     Active Substance: NICAMETATE
     Indication: Nutritional supplementation
     Route: 048
     Dates: start: 20230815, end: 20230911
  13. LENOGRASTIM [Concomitant]
     Active Substance: LENOGRASTIM
     Indication: Prophylaxis
     Route: 058
     Dates: start: 20230908, end: 20230910
  14. DIPHENHYDRAMINE [Concomitant]
     Active Substance: DIPHENHYDRAMINE
     Indication: Vomiting
     Dosage: FREQ: ONCE
     Route: 042
     Dates: start: 20230920, end: 20230920
  15. CEFUROXIME [Concomitant]
     Active Substance: CEFUROXIME
     Indication: Infection prophylaxis
     Dosage: FREQ: BID
     Route: 048
     Dates: start: 20230920, end: 20230923
  16. MONTMORILLONITE [Concomitant]
     Active Substance: MONTMORILLONITE
     Indication: Diarrhoea
     Dosage: FREQ: PRN
     Route: 048
     Dates: start: 20230920, end: 20230923
  17. METOCLOPRAMIDE [Concomitant]
     Active Substance: METOCLOPRAMIDE
     Indication: Vomiting
     Dosage: FREQ: TID
     Route: 048
     Dates: start: 20230920, end: 20230923
  18. MECLIZINE [Concomitant]
     Active Substance: MECLIZINE HYDROCHLORIDE
     Indication: Fatigue
     Route: 048
     Dates: start: 20230926
  19. MECLIZINE [Concomitant]
     Active Substance: MECLIZINE HYDROCHLORIDE
     Indication: Pruritus
     Route: 048
     Dates: start: 20231013, end: 20231017

REACTIONS (2)
  - Vertigo [Recovering/Resolving]
  - Diplopia [Recovered/Resolved]

NARRATIVE: CASE EVENT DATE: 20230920
